FAERS Safety Report 17615367 (Version 2)
Quarter: 2020Q2

REPORT INFORMATION
  Report Type: Report from Study
  Country: None (occurrence: US)
  Receive Date: 20200402
  Receipt Date: 20200430
  Transmission Date: 20200713
  Serious: Yes (Other)
  Sender: FDA-Public Use
  Company Number: US-ABBVIE-20P-163-3295288-00

PATIENT
  Age: 84 Year
  Sex: Male

DRUGS (1)
  1. IMBRUVICA [Suspect]
     Active Substance: IBRUTINIB
     Indication: CHRONIC LYMPHOCYTIC LEUKAEMIA
     Route: 048
     Dates: start: 20191010, end: 20200227

REACTIONS (13)
  - Pneumonia [Unknown]
  - Contusion [Recovered/Resolved]
  - Pulmonary mass [Unknown]
  - Nausea [Not Recovered/Not Resolved]
  - Abdominal pain [Not Recovered/Not Resolved]
  - Cholelithiasis [Not Recovered/Not Resolved]
  - Atrial fibrillation [Unknown]
  - Platelet count abnormal [Unknown]
  - Biliary dilatation [Unknown]
  - Vomiting [Unknown]
  - Duodenal ulcer [Unknown]
  - White blood cell count abnormal [Recovering/Resolving]
  - Platelet count decreased [Unknown]

NARRATIVE: CASE EVENT DATE: 2019
